FAERS Safety Report 17246433 (Version 1)
Quarter: 2020Q1

REPORT INFORMATION
  Report Type: Spontaneous
  Country: EG (occurrence: EG)
  Receive Date: 20200108
  Receipt Date: 20200108
  Transmission Date: 20200409
  Serious: Yes (Life-Threatening, Hospitalization, Other)
  Sender: FDA-Public Use
  Company Number: EG-HIKMA PHARMACEUTICALS USA INC.-EG-H14001-19-06407

PATIENT
  Age: 65 Year
  Sex: Female
  Weight: 80 kg

DRUGS (4)
  1. ARTHFREE [Suspect]
     Active Substance: LEFLUNOMIDE
     Indication: RHEUMATOID ARTHRITIS
     Route: 048
     Dates: start: 2019, end: 20191203
  2. ARTHFREE [Suspect]
     Active Substance: LEFLUNOMIDE
     Indication: CHRONIC KIDNEY DISEASE
  3. UNITREXATE [Suspect]
     Active Substance: METHOTREXATE
     Indication: CHRONIC KIDNEY DISEASE
  4. UNITREXATE [Suspect]
     Active Substance: METHOTREXATE
     Indication: RHEUMATOID ARTHRITIS
     Route: 042
     Dates: start: 2019, end: 20190126

REACTIONS (6)
  - Overdose [Recovered/Resolved]
  - Off label use [Recovered/Resolved]
  - Weight decreased [Unknown]
  - Sepsis [Recovered/Resolved]
  - Drug interaction [Recovered/Resolved]
  - Bone marrow failure [Recovered/Resolved]
